FAERS Safety Report 6397918-X (Version None)
Quarter: 2009Q4

REPORT INFORMATION
  Report Type: 
  Country: None (occurrence: None)
  Receive Date: 20091006
  Receipt Date: 20090926
  Transmission Date: 20100525
  Serious: Yes (Hospitalization, Other)
  Sender: FDA-Public Use
  Company Number: 2009SP020249

PATIENT
  Age: 58 Year
  Sex: Female

DRUGS (8)
  1. PEG-INTRON [Suspect]
     Indication: HEPATITIS C
     Dosage: SC
     Route: 058
     Dates: start: 20090729, end: 20090801
  2. PEG-INTRON [Suspect]
     Indication: HEPATITIS C
     Dosage: SC
     Route: 058
  3. REBETOL [Suspect]
     Indication: HEPATITIS C
     Dosage: PO
     Route: 048
     Dates: start: 20090729, end: 20090801
  4. REBETOL [Suspect]
     Indication: HEPATITIS C
     Dosage: PO
     Route: 048
  5. PROGRAF [Suspect]
     Indication: LIVER TRANSPLANT
     Dosage: 1 MG; BID; PO
     Route: 048
  6. METHADONE HYDROCHLORIDE [Concomitant]
  7. AMLODIPINE [Concomitant]
  8. WELLBUTRIN [Concomitant]

REACTIONS (15)
  - BRAIN OEDEMA [None]
  - BRONCHITIS [None]
  - CEREBROVASCULAR ACCIDENT [None]
  - DEMENTIA [None]
  - DEPRESSION [None]
  - DISORIENTATION [None]
  - DRUG INTERACTION [None]
  - DYSPHAGIA [None]
  - ELECTROLYTE IMBALANCE [None]
  - HYPERTENSION [None]
  - HYPOKALAEMIA [None]
  - PANCYTOPENIA [None]
  - RESPIRATORY FAILURE [None]
  - REVERSIBLE POSTERIOR LEUKOENCEPHALOPATHY SYNDROME [None]
  - STAPHYLOCOCCAL INFECTION [None]
